FAERS Safety Report 5332028-1 (Version None)
Quarter: 2007Q2

REPORT INFORMATION
  Report Type: 
  Country: None (occurrence: None)
  Receive Date: 20070523
  Receipt Date: 20070514
  Transmission Date: 20071010
  Serious: Yes (Other)
  Sender: FDA-Public Use
  Company Number: PHFR2007GB01616

PATIENT
  Sex: Male

DRUGS (2)
  1. TEGRETOL [Suspect]
     Indication: EPILEPSY
     Dosage: 1200MG/DAY
     Route: 048
  2. TEGRETOL [Suspect]
     Dosage: 400MG MANE, 200MG NOCTE
     Route: 048

REACTIONS (4)
  - DRUG LEVEL DECREASED [None]
  - ILEOSTOMY [None]
  - MALAISE [None]
  - RECTAL CANCER [None]
